FAERS Safety Report 4703510-2 (Version None)
Quarter: 2005Q2

REPORT INFORMATION
  Report Type: 
  Country: None (occurrence: None)
  Receive Date: 20050630
  Receipt Date: 20050620
  Transmission Date: 20051028
  Serious: Yes (Other)
  Sender: FDA-Public Use
  Company Number: CA-SOLVAY-00305002062

PATIENT
  Age: 41 Year
  Sex: Female
  Weight: 68 kg

DRUGS (1)
  1. ANDROGEL [Suspect]
     Indication: MENOPAUSAL SYMPTOMS
     Dosage: DAILY DOSE: 1 MILLIGRAM(S)
     Route: 061
     Dates: start: 20041001, end: 20050215

REACTIONS (5)
  - AGGRESSION [None]
  - INCREASED APPETITE [None]
  - IRRITABILITY [None]
  - LIBIDO INCREASED [None]
  - WEIGHT INCREASED [None]
